FAERS Safety Report 9375139 (Version 1)
Quarter: 2013Q2

REPORT INFORMATION
  Report Type: Spontaneous
  Country: FR (occurrence: FR)
  Receive Date: 20130628
  Receipt Date: 20130628
  Transmission Date: 20140414
  Serious: Yes (Hospitalization)
  Sender: FDA-Public Use
  Company Number: FR-009507513-1201FRA00109

PATIENT
  Age: 60 Year
  Sex: Female

DRUGS (10)
  1. NOROXINE [Suspect]
     Indication: CYSTITIS BACTERIAL
     Dosage: 800 MG, QD
     Route: 048
     Dates: start: 20111122, end: 20111130
  2. QUETIAPINE FUMARATE [Suspect]
     Indication: DEPRESSION
     Dosage: 100 MG, QD
     Route: 048
     Dates: start: 20111201, end: 20111202
  3. CYMBALTA [Suspect]
     Indication: DEPRESSION
     Dosage: 60 MG, QD
     Route: 048
     Dates: start: 20111107, end: 20111208
  4. CORTANCYL [Concomitant]
     Indication: SYSTEMIC LUPUS ERYTHEMATOSUS
     Dosage: 15 MG, QD
     Route: 048
  5. COVERSYL (PERINDOPRIL ERBUMINE) [Concomitant]
     Dosage: 5 MG, QD
     Route: 048
  6. ISOPTINE [Concomitant]
  7. KARDEGIC [Concomitant]
  8. LYSANXIA [Concomitant]
  9. PARIET [Concomitant]
  10. SIMVASTATIN [Concomitant]

REACTIONS (2)
  - Drug eruption [Recovered/Resolved]
  - Pruritus [Recovered/Resolved]
